FAERS Safety Report 5526117-6 (Version None)
Quarter: 2007Q4

REPORT INFORMATION
  Report Type: 
  Country: None (occurrence: None)
  Receive Date: 20071120
  Receipt Date: 20071107
  Transmission Date: 20080405
  Serious: Yes (Hospitalization)
  Sender: FDA-Public Use
  Company Number: 2007S1011595

PATIENT
  Age: 74 Year
  Sex: Male

DRUGS (9)
  1. WARFARIN SODIUM [Suspect]
     Indication: DRUG USE FOR UNKNOWN INDICATION
     Dosage: ORAL
     Route: 048
     Dates: start: 20070929
  2. WARFARIN SODIUM [Suspect]
     Indication: DRUG USE FOR UNKNOWN INDICATION
     Dosage: ORAL
     Route: 048
     Dates: start: 20070929
  3. ASPIRIN [Concomitant]
  4. BISOPROLOL FUMARATE [Concomitant]
  5. CLOPIDOGREL [Concomitant]
  6. DIGOXIN [Concomitant]
  7. FUROSEMIDE [Concomitant]
  8. LISINOPRIL [Concomitant]
  9. SIMVASTATIN [Concomitant]

REACTIONS (2)
  - BLISTER [None]
  - INTERNATIONAL NORMALISED RATIO INCREASED [None]
